FAERS Safety Report 5337711-X (Version None)
Quarter: 2007Q2

REPORT INFORMATION
  Report Type: 
  Country: None (occurrence: None)
  Receive Date: 20070315
  Receipt Date: 20060113
  Transmission Date: 20071010
  Serious: Yes (Other)
  Sender: FDA-Public Use
  Company Number: PHEH2006US00951

PATIENT
  Age: 8 Year
  Sex: Female

DRUGS (1)
  1. TRILEPTAL [Suspect]
     Indication: AFFECTIVE DISORDER
     Dosage: 600 MG, QD, ORAL
     Route: 048
     Dates: start: 20050727

REACTIONS (3)
  - IRRITABILITY [None]
  - THYROXINE DECREASED [None]
  - THYROXINE FREE DECREASED [None]
